FAERS Safety Report 20900539 (Version 1)
Quarter: 2022Q2

REPORT INFORMATION
  Report Type: Spontaneous
  Country: CA (occurrence: CA)
  Receive Date: 20220601
  Receipt Date: 20220601
  Transmission Date: 20220720
  Serious: Yes (Hospitalization)
  Sender: FDA-Public Use
  Company Number: CA-JNJFOC-20220557032

PATIENT
  Age: 60 Year
  Sex: Male

DRUGS (4)
  1. INVEGA [Interacting]
     Active Substance: PALIPERIDONE
     Indication: Product used for unknown indication
     Route: 048
  2. BENZTROPINE MESYLATE [Interacting]
     Active Substance: BENZTROPINE MESYLATE
     Indication: Product used for unknown indication
     Route: 065
  3. CHLORPROMAZINE [Suspect]
     Active Substance: CHLORPROMAZINE
     Indication: Product used for unknown indication
     Route: 065
  4. LITHIUM CARBONATE [Suspect]
     Active Substance: LITHIUM CARBONATE
     Indication: Product used for unknown indication
     Route: 065

REACTIONS (7)
  - Neurotoxicity [Unknown]
  - Delirium [Unknown]
  - Drug interaction [Unknown]
  - Electroconvulsive therapy [Unknown]
  - Asthenia [Unknown]
  - Constipation [Unknown]
  - Tremor [Unknown]
